FAERS Safety Report 4759380-X (Version None)
Quarter: 2005Q3

REPORT INFORMATION
  Report Type: 
  Country: None (occurrence: None)
  Receive Date: 20050831
  Receipt Date: 20050818
  Transmission Date: 20060218
  Serious: Yes (Hospitalization)
  Sender: FDA-Public Use
  Company Number: 194285

PATIENT
  Age: 52 Year
  Sex: Female
  Weight: 69.4003 kg

DRUGS (7)
  1. AVONEX [Suspect]
     Indication: MULTIPLE SCLEROSIS
     Dosage: 30 UG;QW;IM
     Route: 030
     Dates: start: 20030801, end: 20040301
  2. ALTACE [Concomitant]
  3. TOPROL-XL [Concomitant]
  4. DARVOCET-N 100 [Concomitant]
  5. ASPIRIN [Concomitant]
  6. RESTORIL [Concomitant]
  7. ZOCOR [Concomitant]

REACTIONS (1)
  - CORONARY ARTERY SURGERY [None]
